FAERS Safety Report 8392551-2 (Version None)
Quarter: 2012Q2

REPORT INFORMATION
  Report Type: 
  Country: None (occurrence: None)
  Receive Date: 20120529
  Receipt Date: 20120521
  Transmission Date: 20120825
  Serious: Yes (Hospitalization)
  Sender: FDA-Public Use
  Company Number: FI-MERCK-1205USA03749

PATIENT
  Age: 70 Year
  Sex: Female

DRUGS (1)
  1. BRINAVESS [Suspect]
     Indication: ATRIAL FIBRILLATION
     Route: 051
     Dates: start: 20120520, end: 20120520

REACTIONS (4)
  - DRUG INEFFECTIVE [None]
  - TACHYCARDIA [None]
  - ATRIAL FIBRILLATION [None]
  - ATRIAL FLUTTER [None]
